FAERS Safety Report 16468330 (Version 1)
Quarter: 2019Q2

REPORT INFORMATION
  Report Type: Spontaneous
  Country: FR (occurrence: FR)
  Receive Date: 20190624
  Receipt Date: 20190624
  Transmission Date: 20190711
  Serious: Yes (Hospitalization)
  Sender: FDA-Public Use
  Company Number: FR-AMGEN-FRASP2019099008

PATIENT
  Age: 46 Year
  Sex: Female
  Weight: 72 kg

DRUGS (2)
  1. ENBREL [Suspect]
     Active Substance: ETANERCEPT
     Indication: ANKYLOSING SPONDYLITIS
     Dosage: 1 DOSAGE FORM, QWK
     Route: 058
     Dates: start: 201604, end: 201604
  2. PLAQUENIL [Concomitant]
     Active Substance: HYDROXYCHLOROQUINE SULFATE
     Indication: URTICARIAL VASCULITIS
     Dosage: UNK

REACTIONS (2)
  - Condition aggravated [Recovered/Resolved]
  - Urticarial vasculitis [Recovered/Resolved]

NARRATIVE: CASE EVENT DATE: 201604
